FAERS Safety Report 10866138 (Version 1)
Quarter: 2015Q1

REPORT INFORMATION
  Report Type: Spontaneous
  Country: ZA (occurrence: None)
  Receive Date: 20150219
  Receipt Date: 20150219
  Transmission Date: 20150721
  Serious: Yes (Hospitalization)
  Sender: FDA-Public Use
  Company Number: 2015HINOTH0149

PATIENT
  Age: 33 Year
  Sex: Female

DRUGS (4)
  1. ZIDOVUDINE (ZIDOVUDINE) UNKNOWN) [Suspect]
     Active Substance: ZIDOVUDINE
     Indication: HIV INFECTION
     Dosage: 600 MG, QD, COURSE 1, ORAL
     Route: 048
     Dates: start: 20080611
  2. DARUNAVIR (PREZISTA, DRV) [Concomitant]
  3. RITONAVIR (NORVIR, RTV) (NORVIR, RTV) [Concomitant]
  4. TENOFOVIR (TENOFOVIR) UNKNOWN [Suspect]
     Active Substance: TENOFOVIR
     Indication: HIV INFECTION
     Dosage: 300 MG, QD, COURSE 1, ORAL
     Route: 048
     Dates: start: 20080611

REACTIONS (3)
  - Exposure during pregnancy [None]
  - Foetal distress syndrome [None]
  - Preterm premature rupture of membranes [None]
